FAERS Safety Report 9287277 (Version 7)
Quarter: 2013Q3

REPORT INFORMATION
  Report Type: Spontaneous
  Country: JP (occurrence: JP)
  Receive Date: 20130513
  Receipt Date: 20130927
  Transmission Date: 20140515
  Serious: Yes (Life-Threatening, Hospitalization)
  Sender: FDA-Public Use
  Company Number: JP-B.I. PHARMACEUTICALS,INC./RIDGEFIELD-2013-BI-13056NB

PATIENT
  Age: 71 Year
  Sex: Male
  Weight: 59 kg

DRUGS (12)
  1. PRADAXA [Suspect]
     Indication: CEREBROVASCULAR ACCIDENT PROPHYLAXIS
     Dosage: 300 MG
     Route: 048
     Dates: start: 20120616, end: 20130305
  2. FAMOTIDINE OD / FAMOTIDINE [Concomitant]
     Indication: GASTRITIS PROPHYLAXIS
     Dosage: 20 MG
     Route: 048
     Dates: start: 20040810, end: 20130305
  3. THEOLONG / THEOPHYLLINE [Concomitant]
     Indication: CHRONIC OBSTRUCTIVE PULMONARY DISEASE
     Dosage: 100 MG
     Route: 048
     Dates: end: 20130305
  4. CLARITHROMYCIN / CLARITHROMYCIN [Concomitant]
     Indication: CHRONIC OBSTRUCTIVE PULMONARY DISEASE
     Dosage: 200 MG
     Route: 048
     Dates: start: 20090623, end: 20130305
  5. AMLODIPINE / AMLODIPINE BESILATE [Concomitant]
     Indication: HYPERTENSION
     Dosage: 2.5 MG
     Route: 048
     Dates: end: 20130305
  6. PREDNISOLONE / PREDNISOLONE [Concomitant]
     Indication: CHRONIC OBSTRUCTIVE PULMONARY DISEASE
     Dosage: 10 MG
     Route: 048
     Dates: end: 20130305
  7. FUROSEMIDE / FUROSEMIDE [Concomitant]
     Indication: CARDIAC FAILURE
     Dosage: 20 MG
     Route: 065
     Dates: start: 20130304, end: 20130304
  8. SOL-MELCORT / METHYLPREDNISOLONE SODIUM SUCCINATE [Concomitant]
     Indication: CHRONIC OBSTRUCTIVE PULMONARY DISEASE
     Dosage: 1000 MG
     Route: 065
     Dates: start: 20130304, end: 20130304
  9. NITOROL / ISOSORBIDE DINITRATE [Concomitant]
     Indication: CARDIAC FAILURE
     Dosage: 5 MG
     Route: 065
     Dates: start: 20130304, end: 20130304
  10. FINIBAX / DORIPENEM HYDRATE [Concomitant]
     Indication: PNEUMONIA
     Dosage: 0.5 MG
     Route: 065
     Dates: start: 20130304, end: 20130312
  11. MEYLON / SODIUM BICARBONATE [Concomitant]
     Indication: LACTIC ACIDOSIS
     Dosage: 250 ML
     Route: 065
     Dates: start: 20130304, end: 20130304
  12. OMEPRAZOLE / OMEPRAZOLE [Concomitant]
     Indication: PROPHYLAXIS AGAINST GASTROINTESTINAL ULCER
     Dosage: 20 MG
     Route: 065
     Dates: start: 20130305, end: 20130311

REACTIONS (12)
  - Activated partial thromboplastin time prolonged [Not Recovered/Not Resolved]
  - International normalised ratio abnormal [Not Recovered/Not Resolved]
  - Lung infection [Recovered/Resolved]
  - Dyspnoea [Not Recovered/Not Resolved]
  - Liver function test abnormal [Recovered/Resolved]
  - Chronic obstructive pulmonary disease [Not Recovered/Not Resolved]
  - Pneumonia [Recovered/Resolved]
  - Chronic obstructive pulmonary disease [Not Recovered/Not Resolved]
  - Pneumothorax spontaneous [Recovered/Resolved]
  - Renal function test abnormal [Recovered/Resolved]
  - Malaise [Recovered/Resolved]
  - Decreased appetite [Recovered/Resolved]
